FAERS Safety Report 8048432-7 (Version None)
Quarter: 2012Q1

REPORT INFORMATION
  Report Type: 
  Country: None (occurrence: None)
  Receive Date: 20120117
  Receipt Date: 20120113
  Transmission Date: 20120608
  Serious: No
  Sender: FDA-Public Use
  Company Number: US-PFIZER INC-2012010977

PATIENT

DRUGS (2)
  1. AMLODIPINE BESYLATE [Suspect]
     Dosage: 10 MG, UNK
  2. AMLODIPINE BESYLATE [Suspect]
     Dosage: 10 MG, UNK

REACTIONS (1)
  - OEDEMA PERIPHERAL [None]
